FAERS Safety Report 22528582 (Version 1)
Quarter: 2023Q2

REPORT INFORMATION
  Report Type: Spontaneous
  Country: BA (occurrence: BA)
  Receive Date: 20230607
  Receipt Date: 20230607
  Transmission Date: 20230722
  Serious: Yes (Other)
  Sender: FDA-Public Use
  Company Number: BA-BAYER-2023A078941

PATIENT
  Age: 76 Year
  Sex: Male

DRUGS (8)
  1. XARELTO [Suspect]
     Active Substance: RIVAROXABAN
     Indication: Product used for unknown indication
     Dosage: 20 MG, QD (IN THE EVENING WITH MEAL)
     Route: 048
  2. ENALAPRIL MALEATE\HYDROCHLOROTHIAZIDE [Concomitant]
     Active Substance: ENALAPRIL MALEATE\HYDROCHLOROTHIAZIDE
     Dosage: 10/25 MG 1X1
  3. COPPER GLUCONATE\FERROUS GLUCONATE\MANGANESE GLUCONATE [Concomitant]
     Active Substance: COPPER GLUCONATE\FERROUS GLUCONATE\MANGANESE GLUCONATE
     Dosage: UNK (2X1)
  4. DUTAPROST [Concomitant]
     Dosage: UNK (1X1)
  5. PROPAFEN [PROPAFENONE] [Concomitant]
     Dosage: 150 MG, QD
  6. ENALAPRIL [Concomitant]
     Active Substance: ENALAPRIL
     Dosage: 20 MG, QD
  7. METFORMIN HYDROCHLORIDE [Concomitant]
     Active Substance: METFORMIN HYDROCHLORIDE
     Dosage: UNK (1X1)
  8. INSULIN NOS [Concomitant]
     Active Substance: INSULIN NOS
     Dosage: UNK

REACTIONS (13)
  - Loss of consciousness [Unknown]
  - Hemiparesis [Unknown]
  - Vomiting [Unknown]
  - Condition aggravated [Unknown]
  - Coma [Unknown]
  - Respiratory failure [Unknown]
  - Cerebral haemorrhage [Unknown]
  - Dyspnoea [Unknown]
  - Mobility decreased [Unknown]
  - Sopor [Unknown]
  - Motor dysfunction [Unknown]
  - Somnolence [Unknown]
  - Stupor [Unknown]
